FAERS Safety Report 6765021-2 (Version None)
Quarter: 2010Q2

REPORT INFORMATION
  Report Type: 
  Country: None (occurrence: None)
  Receive Date: 20100609
  Receipt Date: 20100310
  Transmission Date: 20101027
  Serious: No
  Sender: FDA-Public Use
  Company Number: 2010006117

PATIENT
  Age: 4 Year
  Sex: Male
  Weight: 17.2367 kg

DRUGS (1)
  1. CHILDREN'S ZYRTEC ALLERGY [Suspect]
     Indication: HYPERSENSITIVITY
     Dosage: 1 TABLET (STRENGTH UNSPECIFIED) PER DAY, ORAL
     Route: 048
     Dates: start: 20100309, end: 20100310

REACTIONS (2)
  - RASH [None]
  - WRONG DRUG ADMINISTERED [None]
